FAERS Safety Report 17831726 (Version 1)
Quarter: 2020Q2

REPORT INFORMATION
  Report Type: Spontaneous
  Country: US (occurrence: US)
  Receive Date: 20200528
  Receipt Date: 20200528
  Transmission Date: 20200714
  Serious: No
  Sender: FDA-Public Use
  Company Number: US-ROCHE-2448635

PATIENT
  Sex: Male
  Weight: 164 kg

DRUGS (1)
  1. OCREVUS [Suspect]
     Active Substance: OCRELIZUMAB
     Indication: MULTIPLE SCLEROSIS
     Dosage: OTHER SUBSEQUENT DOSES: 25/MAR/2019 AND 04/OCT/2019
     Route: 042
     Dates: start: 20180924

REACTIONS (1)
  - Retinal disorder [Unknown]
